FAERS Safety Report 11030166 (Version 1)
Quarter: 2015Q2

REPORT INFORMATION
  Report Type: Spontaneous
  Country: US (occurrence: None)
  Receive Date: 20150414
  Receipt Date: 20150414
  Transmission Date: 20150821
  Serious: No
  Sender: FDA-Public Use
  Company Number: None

PATIENT
  Age: 36 Year
  Sex: Male

DRUGS (1)
  1. HARVONI [Suspect]
     Active Substance: LEDIPASVIR\SOFOSBUVIR
     Indication: HEPATITIS C
     Dosage: 1 TABLET, DAILY, ORAL
     Route: 048
     Dates: start: 201503

REACTIONS (3)
  - Insomnia [None]
  - Headache [None]
  - Pain [None]

NARRATIVE: CASE EVENT DATE: 201503
